FAERS Safety Report 22187090 (Version 1)
Quarter: 2023Q2

REPORT INFORMATION
  Report Type: Spontaneous
  Country: US (occurrence: None)
  Receive Date: 20230407
  Receipt Date: 20230407
  Transmission Date: 20230721
  Serious: Yes (Death)
  Sender: FDA-Public Use
  Company Number: None

PATIENT
  Age: 63 Year
  Sex: Male
  Weight: 60.01 kg

DRUGS (17)
  1. PROMACTA [Suspect]
     Active Substance: ELTROMBOPAG OLAMINE
     Indication: Immune thrombocytopenia
     Dosage: FREQUENCY : DAILY;?
     Route: 048
  2. ACETAMINOPHEN [Concomitant]
  3. AMIODARONE [Concomitant]
  4. CALCITRATE PLUS D [Concomitant]
  5. CLONAZEPAM [Concomitant]
  6. FOLIC ACID [Concomitant]
     Active Substance: FOLIC ACID
  7. GENVOYA [Concomitant]
     Active Substance: COBICISTAT\ELVITEGRAVIR\EMTRICITABINE\TENOFOVIR ALAFENAMIDE FUMARATE
  8. HALOPERIDOL [Concomitant]
     Active Substance: HALOPERIDOL
  9. LEVETIRACETAM [Concomitant]
     Active Substance: LEVETIRACETAM
  10. MIDODRINE [Concomitant]
     Active Substance: MIDODRINE
  11. NAMENDA [Concomitant]
     Active Substance: MEMANTINE HYDROCHLORIDE
  12. POTASSIUM CHLORIDE [Concomitant]
     Active Substance: POTASSIUM CHLORIDE
  13. PREDNISONE [Concomitant]
  14. SERTRALINE [Concomitant]
  15. VIMPAT [Concomitant]
     Active Substance: LACOSAMIDE
  16. VITAMIN D [Concomitant]
     Active Substance: VITAMIN D NOS
  17. ZINC OXIDE [Concomitant]
     Active Substance: ZINC OXIDE

REACTIONS (1)
  - Death [None]
